FAERS Safety Report 23643235 (Version 1)
Quarter: 2024Q1

REPORT INFORMATION
  Report Type: Spontaneous
  Country: US (occurrence: None)
  Receive Date: 20240315
  Receipt Date: 20240315
  Transmission Date: 20240410
  Serious: Yes (Life-Threatening)
  Sender: FDA-Public Use
  Company Number: None

PATIENT
  Age: 34 Year
  Sex: Male
  Weight: 92.25 kg

DRUGS (7)
  1. VIVARIN [Suspect]
     Active Substance: CAFFEINE
     Indication: Supplementation therapy
     Route: 048
     Dates: start: 20240307, end: 20240315
  2. VIVARIN [Suspect]
     Active Substance: CAFFEINE
     Indication: Blood caffeine
  3. VIVARIN [Suspect]
     Active Substance: CAFFEINE
     Indication: Liver disorder
  4. TERBINAFINE [Concomitant]
     Active Substance: TERBINAFINE
  5. CETIRIZINE [Concomitant]
     Active Substance: CETIRIZINE HYDROCHLORIDE
  6. FLONASE [Concomitant]
     Active Substance: FLUTICASONE PROPIONATE
  7. Primal Harvest multivitamin [Concomitant]

REACTIONS (1)
  - Feeling abnormal [None]

NARRATIVE: CASE EVENT DATE: 20240315
